FAERS Safety Report 10028838 (Version 5)
Quarter: 2014Q2

REPORT INFORMATION
  Report Type: Report from Study
  Country: AU (occurrence: AU)
  Receive Date: 20140321
  Receipt Date: 20140506
  Transmission Date: 20141212
  Serious: Yes (Other)
  Sender: FDA-Public Use
  Company Number: PHHY2014AU033337

PATIENT
  Age: 58 Year
  Sex: Female
  Weight: 73 kg

DRUGS (2)
  1. CLOZARIL [Suspect]
     Indication: MENTAL DISORDER
     Dosage: 37.5 MG, UNK
     Dates: start: 20140226
  2. CLOZARIL [Suspect]
     Indication: SCHIZOPHRENIA

REACTIONS (6)
  - Parkinson^s disease [Unknown]
  - Myocardial ischaemia [Unknown]
  - Troponin I increased [Recovered/Resolved]
  - C-reactive protein increased [Recovered/Resolved]
  - White blood cell count increased [Recovering/Resolving]
  - Monocyte count increased [Unknown]
